FAERS Safety Report 12702073 (Version 4)
Quarter: 2016Q3

REPORT INFORMATION
  Report Type: Spontaneous
  Country: US (occurrence: US)
  Receive Date: 20160831
  Receipt Date: 20160922
  Transmission Date: 20161109
  Serious: No
  Sender: FDA-Public Use
  Company Number: US-LEO PHARMA-243691

PATIENT
  Sex: Male
  Weight: 102 kg

DRUGS (1)
  1. PICATO [Suspect]
     Active Substance: INGENOL MEBUTATE
     Indication: ACTINIC KERATOSIS
     Dates: start: 201607, end: 201607

REACTIONS (3)
  - No adverse event [Unknown]
  - Drug administration error [Unknown]
  - Drug ineffective [Unknown]
